FAERS Safety Report 13461308 (Version 2)
Quarter: 2017Q2

REPORT INFORMATION
  Report Type: Spontaneous
  Country: US (occurrence: US)
  Receive Date: 20170420
  Receipt Date: 20170502
  Transmission Date: 20170830
  Serious: Yes (Death, Hospitalization)
  Sender: FDA-Public Use
  Company Number: US-B.I. PHARMACEUTICALS,INC./RIDGEFIELD-2017-BI-022429

PATIENT
  Age: 88 Year
  Sex: Male

DRUGS (3)
  1. ACYCLOVIR. [Concomitant]
     Active Substance: ACYCLOVIR
     Indication: HERPES OPHTHALMIC
     Dosage: 1 TABLET 1 TIME DAILY;  FORM STRENGTH: 500MG; FORMULATION: TABLET
     Route: 048
  2. MIRAPEX [Suspect]
     Active Substance: PRAMIPEXOLE DIHYDROCHLORIDE
     Indication: RESTLESS LEGS SYNDROME
     Route: 048
     Dates: start: 2016
  3. MIRAPEX [Suspect]
     Active Substance: PRAMIPEXOLE DIHYDROCHLORIDE
     Indication: RESTLESS LEGS SYNDROME
     Route: 065
     Dates: start: 2015, end: 2016

REACTIONS (3)
  - Pneumonia [Fatal]
  - Acute respiratory distress syndrome [Fatal]
  - Aspiration [Fatal]

NARRATIVE: CASE EVENT DATE: 201704
